FAERS Safety Report 6185644-1 (Version None)
Quarter: 2009Q2

REPORT INFORMATION
  Report Type: 
  Country: None (occurrence: None)
  Receive Date: 20090507
  Receipt Date: 20090427
  Transmission Date: 20091009
  Serious: Yes (Life-Threatening, Hospitalization)
  Sender: FDA-Public Use
  Company Number: TAP2009Q00217

PATIENT
  Age: 39 Year
  Sex: Male
  Weight: 94.3482 kg

DRUGS (2)
  1. PREVPAC [Suspect]
     Indication: DYSPEPSIA
     Dosage: 1 IN 1 D, PER ORAL
     Route: 048
     Dates: start: 20090101, end: 20090101
  2. PREVPAC [Suspect]
     Indication: PEPTIC ULCER
     Dosage: 1 IN 1 D, PER ORAL
     Route: 048
     Dates: start: 20090101, end: 20090101

REACTIONS (4)
  - HYPERSENSITIVITY [None]
  - PULMONARY OEDEMA [None]
  - RESPIRATORY DISORDER [None]
  - TROPICAL EOSINOPHILIA [None]
